FAERS Safety Report 4345965-1 (Version None)
Quarter: 2004Q2

REPORT INFORMATION
  Report Type: 
  Country: None (occurrence: None)
  Receive Date: 20040426
  Receipt Date: 20040218
  Transmission Date: 20050107
  Serious: Yes (Death, Life-Threatening)
  Sender: FDA-Public Use
  Company Number: JP-BRISTOL-MYERS SQUIBB COMPANY-12511580

PATIENT
  Age: 85 Year
  Sex: Female

DRUGS (7)
  1. VEPESID [Suspect]
     Indication: B-CELL LYMPHOMA
     Dosage: THERAPY DATES: 13-MAR-2001 TO 26-MAR-2001
     Route: 048
     Dates: start: 20010326, end: 20010326
  2. VEPESID [Suspect]
     Indication: B-CELL LYMPHOMA
     Dosage: THERAPY DATES: 09-MAY-2001 TO 13-MAY-2001
     Route: 042
     Dates: start: 20010513, end: 20010513
  3. PERSANTIN [Concomitant]
     Route: 048
     Dates: start: 20010517, end: 20010524
  4. NITOROL [Concomitant]
     Route: 048
     Dates: start: 20010220, end: 20010524
  5. PANALDINE [Concomitant]
     Route: 048
     Dates: start: 20010219, end: 20010524
  6. SELECTOL [Concomitant]
     Route: 048
     Dates: start: 20010220, end: 20010524
  7. MUCODYNE [Concomitant]
     Route: 048
     Dates: start: 20010309, end: 20010524

REACTIONS (3)
  - BONE MARROW DEPRESSION [None]
  - PNEUMONIA [None]
  - RENAL FAILURE [None]
